FAERS Safety Report 25958236 (Version 2)
Quarter: 2025Q4

REPORT INFORMATION
  Report Type: Spontaneous
  Country: US (occurrence: US)
  Receive Date: 20251024
  Receipt Date: 20251120
  Transmission Date: 20260119
  Serious: Yes (Other)
  Sender: JAZZ
  Company Number: US-JAZZ PHARMACEUTICALS-2025-US-024265

PATIENT
  Age: 39 Year
  Sex: Female

DRUGS (1)
  1. XYWAV [Suspect]
     Active Substance: CALCIUM OXYBATE\MAGNESIUM OXYBATE\POTASSIUM OXYBATE\SODIUM OXYBATE
     Indication: Product used for unknown indication
     Dosage: 4.5 GRAM

REACTIONS (4)
  - Electrocardiogram QRS complex prolonged [Recovering/Resolving]
  - Syncope [Recovering/Resolving]
  - Tachycardia [Unknown]
  - Medication error [Recovering/Resolving]
